FAERS Safety Report 10087309 (Version 2)
Quarter: 2014Q2

REPORT INFORMATION
  Report Type: Spontaneous
  Country: US (occurrence: US)
  Receive Date: 20140418
  Receipt Date: 20140616
  Transmission Date: 20141212
  Serious: Yes (Death, Hospitalization)
  Sender: FDA-Public Use
  Company Number: US-B.I. PHARMACEUTICALS,INC./RIDGEFIELD-2014-BI-17539BP

PATIENT
  Age: 60 Year
  Sex: Male
  Weight: 112.94 kg

DRUGS (17)
  1. SPIRIVA [Suspect]
     Indication: CHRONIC OBSTRUCTIVE PULMONARY DISEASE
     Dosage: 18 MCG
     Route: 055
     Dates: start: 2011, end: 201403
  2. PROZAC [Concomitant]
     Indication: DEPRESSION
     Dosage: 20 MG
     Route: 048
  3. FLONASE [Concomitant]
     Indication: HYPERSENSITIVITY
     Dosage: FORMULATION: SPRAY, DOSE PER APPLICATION: 50 MCG/INCH 1 SPRAY
     Route: 045
  4. METOPROLOL [Concomitant]
     Indication: HYPERTENSION
     Route: 048
  5. IBUPROFEN [Concomitant]
     Indication: PAIN
     Route: 048
  6. LASIX [Concomitant]
     Indication: OEDEMA
     Dosage: 40 MG
     Route: 048
  7. LASIX [Concomitant]
     Indication: HYPERTENSION
  8. OXYGEN [Concomitant]
     Indication: CHRONIC OBSTRUCTIVE PULMONARY DISEASE
     Dosage: DOSE PER APPLICATION: 2-4 L
     Route: 065
  9. PROAIR HFA [Concomitant]
     Indication: CHRONIC OBSTRUCTIVE PULMONARY DISEASE
     Route: 055
  10. PREDNISONE [Concomitant]
     Indication: CHRONIC OBSTRUCTIVE PULMONARY DISEASE
     Dosage: 20 MG
     Route: 048
  11. BUDESONIDE [Concomitant]
     Indication: CHRONIC OBSTRUCTIVE PULMONARY DISEASE
     Dosage: ROUTE: NEBULIZER, DOSE PER APPLICATION: 0.5 MG/2 ML 2 ML
     Route: 050
  12. DUONEB [Concomitant]
     Indication: CHRONIC OBSTRUCTIVE PULMONARY DISEASE
     Dosage: DOSE PER APPLICATION: 2.5 MG-0.5 MG/3 ML
     Route: 055
  13. ALPRAZOLAM [Concomitant]
     Indication: ANXIETY
     Dosage: 0.5 NR
     Route: 048
  14. ZANTAC [Concomitant]
     Indication: GASTROOESOPHAGEAL REFLUX DISEASE
     Dosage: 150 MG
     Route: 048
  15. SYMBICORT [Concomitant]
     Indication: CHRONIC OBSTRUCTIVE PULMONARY DISEASE
     Dosage: DOSE PER APPLICATION: 160 MCG-4.5 MCG/ INH
     Route: 055
  16. ROFLUMILAST [Concomitant]
     Indication: CHRONIC OBSTRUCTIVE PULMONARY DISEASE
     Dosage: 500 MCG
     Route: 048
  17. TYLENOL EXTRA STRENGTH [Concomitant]
     Route: 048

REACTIONS (1)
  - Cardiac arrest [Fatal]
